FAERS Safety Report 6699541-6 (Version None)
Quarter: 2010Q2

REPORT INFORMATION
  Report Type: 
  Country: None (occurrence: None)
  Receive Date: 20100427
  Receipt Date: 20100427
  Transmission Date: 20101027
  Serious: Yes (Hospitalization)
  Sender: FDA-Public Use
  Company Number: None

PATIENT
  Sex: Male
  Weight: 76.2 kg

DRUGS (5)
  1. ERBITUX [Suspect]
     Dosage: 2300 MG
     Dates: end: 20100407
  2. IRINOTECAN HCL [Suspect]
     Dosage: 1300 MG
     Dates: end: 20100407
  3. DILAUDID [Concomitant]
  4. LEVAQUIN [Concomitant]
  5. LOVENOX [Concomitant]

REACTIONS (1)
  - DIARRHOEA [None]
